FAERS Safety Report 13712153 (Version 1)
Quarter: 2017Q3

REPORT INFORMATION
  Report Type: Spontaneous
  Country: US (occurrence: US)
  Receive Date: 20170703
  Receipt Date: 20170703
  Transmission Date: 20171127
  Serious: No
  Sender: FDA-Public Use
  Company Number: US-JNJFOC-20170621584

PATIENT
  Age: 16 Year
  Sex: Female
  Weight: 56.7 kg

DRUGS (3)
  1. TOPAMAX [Suspect]
     Active Substance: TOPIRAMATE
     Indication: MIGRAINE PROPHYLAXIS
     Route: 048
     Dates: start: 201612, end: 20170616
  2. SIMVAST [Concomitant]
     Indication: MIGRAINE
     Route: 048
  3. ETHINYLESTRADIOL W/NORGESTIMATE [Concomitant]
     Indication: CONTRACEPTION
     Route: 048
     Dates: start: 2016

REACTIONS (5)
  - Feeling abnormal [Not Recovered/Not Resolved]
  - Apathy [Not Recovered/Not Resolved]
  - Depression [Not Recovered/Not Resolved]
  - Cluster headache [Not Recovered/Not Resolved]
  - Weight increased [Unknown]

NARRATIVE: CASE EVENT DATE: 201702
